FAERS Safety Report 9719303 (Version 1)
Quarter: 2013Q4

REPORT INFORMATION
  Report Type: Report from Study
  Country: MX (occurrence: MX)
  Receive Date: 20131127
  Receipt Date: 20131127
  Transmission Date: 20140711
  Serious: Yes (Death, Other)
  Sender: FDA-Public Use
  Company Number: PHHY2013MX136808

PATIENT
  Age: 72 Year
  Sex: Male

DRUGS (1)
  1. CO-DIOVAN [Suspect]
     Dosage: 1 DF, (VALS 160 MG/ HCT 12.5 MG) DAILY
     Route: 048

REACTIONS (3)
  - Blood disorder [Fatal]
  - Septic shock [Fatal]
  - General physical health deterioration [Fatal]
